FAERS Safety Report 8681745 (Version 2)
Quarter: 2012Q4

REPORT INFORMATION
  Report Type: 
  Country: FR (occurrence: FR)
  Receive Date: 20120725
  Receipt Date: 20121227
  Transmission Date: 20130627
  Serious: Yes (Other)
  Sender: FDA-Public Use
  Company Number: FR-VERTEX PHARMACEUTICALS INC.-000000000000001211

PATIENT
  Age: 70 Year
  Sex: Female
  Weight: 73 kg

DRUGS (5)
  1. INCIVO [Suspect]
     Indication: HEPATITIS C
     Dosage: Dosage Form: Tablet
     Dates: start: 20120420, end: 20120710
  2. COPEGUS [Suspect]
     Indication: HEPATITIS C
     Dosage: Dosage Form: Unknown
     Route: 048
     Dates: start: 20120420
  3. PEGASYS [Suspect]
     Indication: HEPATITIS C
     Dosage: Dosage Form: Unspecified
     Route: 058
     Dates: start: 20120420
  4. NEORECORMON [Suspect]
     Indication: PROPHYLAXIS
     Dosage: Dosage Form: Unspecified
     Route: 065
     Dates: start: 20120420
  5. PARACETAMOL [Concomitant]
     Indication: PROPHYLAXIS
     Dosage: Dosage Form: Unknown
     Route: 065

REACTIONS (7)
  - Dermatitis exfoliative [Recovered/Resolved]
  - Rash generalised [Recovered/Resolved]
  - Rash macular [Recovered/Resolved]
  - Anaemia [Unknown]
  - Weight decreased [Unknown]
  - Fatigue [Unknown]
  - Diarrhoea [Unknown]
